FAERS Safety Report 5717423-0 (Version None)
Quarter: 2008Q2

REPORT INFORMATION
  Report Type: 
  Country: None (occurrence: None)
  Receive Date: 20080424
  Receipt Date: 20080424
  Transmission Date: 20081010
  Serious: No
  Sender: FDA-Public Use
  Company Number: None

PATIENT
  Sex: Female
  Weight: 31.3 kg

DRUGS (5)
  1. NORDITROPIN NORDIFLEX [Suspect]
     Indication: GROWTH HORMONE DEFICIENCY
     Dosage: 1.3MG DAILY SQ
     Route: 058
     Dates: start: 20070501, end: 20080408
  2. PREVACID [Concomitant]
  3. CELEXA [Concomitant]
  4. MVI WITH IRON [Concomitant]
  5. HYOSCYAMIN [Concomitant]

REACTIONS (1)
  - INJECTION SITE ATROPHY [None]
